FAERS Safety Report 6182831-3 (Version None)
Quarter: 2009Q2

REPORT INFORMATION
  Report Type: 
  Country: None (occurrence: None)
  Receive Date: 20090507
  Receipt Date: 20090429
  Transmission Date: 20091009
  Serious: Yes (Congenital Anomaly)
  Sender: FDA-Public Use
  Company Number: ES-B.I. PHARMACEUTICALS,INC./RIDGEFIELD-2009-DE-02994GD

PATIENT

DRUGS (4)
  1. NEVIRAPINE [Suspect]
     Indication: HUMAN IMMUNODEFICIENCY VIRUS TRANSMISSION
     Route: 064
  2. NEVIRAPINE [Suspect]
     Indication: PROPHYLAXIS
  3. ANTIRETROVIRAL DRUG [Suspect]
     Indication: HUMAN IMMUNODEFICIENCY VIRUS TRANSMISSION
     Route: 064
  4. ANTIRETROVIRAL DRUG [Suspect]
     Indication: PROPHYLAXIS

REACTIONS (1)
  - CONGENITAL ANOMALY [None]
